FAERS Safety Report 7050929-3 (Version None)
Quarter: 2010Q4

REPORT INFORMATION
  Report Type: 
  Country: None (occurrence: None)
  Receive Date: 20101019
  Receipt Date: 20101007
  Transmission Date: 20110411
  Serious: Yes (Death)
  Sender: FDA-Public Use
  Company Number: ES-RANBAXY-2010RR-37662

PATIENT
  Age: 19 Year
  Sex: Female
  Weight: 75 kg

DRUGS (3)
  1. QUETIAPINE [Suspect]
     Dosage: 300 MG, QD
  2. TOPIRAMATE [Suspect]
     Dosage: 300 MG, UNK
  3. VENLAFAXINE [Suspect]
     Dosage: 150 MG, QD

REACTIONS (6)
  - BRAIN OEDEMA [None]
  - CARDIAC FAILURE [None]
  - CONVULSION [None]
  - METABOLIC ACIDOSIS [None]
  - OVERDOSE [None]
  - RHABDOMYOLYSIS [None]
